FAERS Safety Report 7837671 (Version 2)
Quarter: 2013Q1

REPORT INFORMATION
  Report Type: Spontaneous
  Country: US (occurrence: US)
  Receive Date: 20110302
  Receipt Date: 20130103
  Transmission Date: 20140127
  Serious: Yes (Hospitalization, Other)
  Sender: FDA-Public Use
  Company Number: US-PFIZER INC-2010007249

PATIENT
  Age: 24 Year
  Sex: Female

DRUGS (3)
  1. DILANTIN-125 [Suspect]
     Indication: CONVULSION
     Dosage: 100 MG, 3X/DAY
     Route: 048
     Dates: start: 20080424, end: 20080501
  2. DILANTIN-125 [Suspect]
     Dosage: 200 MG, 3X/DAY
     Route: 048
     Dates: start: 20080501, end: 20080531
  3. DILANTIN-125 [Suspect]
     Dosage: 500 MG, 2X/DAY
     Route: 048
     Dates: start: 20080531, end: 20080531

REACTIONS (1)
  - Stevens-Johnson syndrome [Recovering/Resolving]
